FAERS Safety Report 20826798 (Version 1)
Quarter: 2022Q2

REPORT INFORMATION
  Report Type: Spontaneous
  Country: US (occurrence: None)
  Receive Date: 20220513
  Receipt Date: 20220513
  Transmission Date: 20220720
  Serious: Yes (Hospitalization)
  Sender: FDA-Public Use
  Company Number: None

PATIENT
  Age: 85 Year
  Sex: Male
  Weight: 108 kg

DRUGS (9)
  1. LIBTAYO [Suspect]
     Active Substance: CEMIPLIMAB-RWLC
     Indication: Adenosquamous cell carcinoma
  2. MINERALS\VITAMINS [Concomitant]
     Active Substance: MINERALS\VITAMINS
  3. DEXILANT [Concomitant]
     Active Substance: DEXLANSOPRAZOLE
  4. METOPROLOL SUCCINATE [Concomitant]
     Active Substance: METOPROLOL SUCCINATE
  5. PEPCID [Concomitant]
     Active Substance: FAMOTIDINE
  6. LEVOTHYROXINE [Concomitant]
     Active Substance: LEVOTHYROXINE
  7. LATANOPROST [Concomitant]
     Active Substance: LATANOPROST
  8. VITAMIN D3 [Concomitant]
     Active Substance: CHOLECALCIFEROL
  9. MELATONIN [Concomitant]

REACTIONS (7)
  - Fatigue [None]
  - Asthenia [None]
  - Decreased appetite [None]
  - Aphasia [None]
  - Aphasia [None]
  - Confusional state [None]
  - Encephalitis cytomegalovirus [None]

NARRATIVE: CASE EVENT DATE: 20220426
